FAERS Safety Report 12847869 (Version 1)
Quarter: 2016Q4

REPORT INFORMATION
  Report Type: Spontaneous
  Country: US (occurrence: US)
  Receive Date: 20161014
  Receipt Date: 20161014
  Transmission Date: 20170207
  Serious: No
  Sender: FDA-Public Use
  Company Number: US-FRI-1000087534

PATIENT
  Sex: Male

DRUGS (2)
  1. DEPAKOTE [Concomitant]
     Active Substance: DIVALPROEX SODIUM
     Indication: AFFECTIVE DISORDER
     Dosage: UNK
  2. VRAYLAR [Suspect]
     Active Substance: CARIPRAZINE
     Indication: SCHIZOPHRENIA
     Dosage: 1.5 MG, UNK
     Route: 048
     Dates: start: 2016, end: 201609

REACTIONS (2)
  - Oral discomfort [Recovered/Resolved]
  - Stomatitis [Recovered/Resolved]
